FAERS Safety Report 6240079-8 (Version None)
Quarter: 2009Q2

REPORT INFORMATION
  Report Type: 
  Country: None (occurrence: None)
  Receive Date: 20090618
  Receipt Date: 20090618
  Transmission Date: 20091009
  Serious: Yes (Other)
  Sender: FDA-Public Use
  Company Number: None

PATIENT
  Sex: Female
  Weight: 54.4316 kg

DRUGS (2)
  1. ZICAM GEL SWABS ZICAM LLC [Suspect]
     Indication: NASOPHARYNGITIS
     Dosage: ONE TUBE 1-2X MONTH- WINTER NASAL
     Route: 045
     Dates: start: 20061101, end: 20090201
  2. ZICAM GEL SWABS ZICAM LLC [Suspect]
     Indication: PROPHYLAXIS
     Dosage: ONE TUBE 1-2X MONTH- WINTER NASAL
     Route: 045
     Dates: start: 20061101, end: 20090201

REACTIONS (1)
  - ANOSMIA [None]
